FAERS Safety Report 7569767-8 (Version None)
Quarter: 2011Q2

REPORT INFORMATION
  Report Type: 
  Country: None (occurrence: None)
  Receive Date: 20110620
  Receipt Date: 20110520
  Transmission Date: 20111010
  Serious: Yes (Hospitalization, Other)
  Sender: FDA-Public Use
  Company Number: JPI-P-009302

PATIENT
  Age: 54 Year
  Sex: Female
  Weight: 99.7913 kg

DRUGS (35)
  1. TRAMADOL HCL [Suspect]
     Indication: PAIN
     Dates: start: 20100901
  2. ACETYLSALICYLIC ACID [Concomitant]
  3. XYREM [Suspect]
  4. XYREM [Suspect]
  5. MONTELUKAST SODIUM [Concomitant]
  6. AZELASTINE HCL [Concomitant]
  7. CLINDAMYCIN [Concomitant]
  8. XYREM [Suspect]
     Indication: NARCOLEPSY
     Dosage: SEE IMAGE
     Route: 048
     Dates: start: 20041004
  9. XYREM [Suspect]
     Indication: SLEEP DISORDER
     Dosage: SEE IMAGE
     Route: 048
     Dates: start: 20041004
  10. XYREM [Suspect]
     Indication: SLEEP APNOEA SYNDROME
     Dosage: SEE IMAGE
     Route: 048
     Dates: start: 20041004
  11. XYREM [Suspect]
     Indication: NARCOLEPSY
     Dosage: SEE IMAGE
     Route: 048
     Dates: start: 20090423
  12. XYREM [Suspect]
     Indication: SLEEP DISORDER
     Dosage: SEE IMAGE
     Route: 048
     Dates: start: 20090423
  13. XYREM [Suspect]
     Indication: SLEEP APNOEA SYNDROME
     Dosage: SEE IMAGE
     Route: 048
     Dates: start: 20090423
  14. XYREM [Suspect]
     Indication: NARCOLEPSY
     Dosage: SEE IMAGE
     Route: 048
     Dates: start: 20110323
  15. XYREM [Suspect]
     Indication: SLEEP DISORDER
     Dosage: SEE IMAGE
     Route: 048
     Dates: start: 20110323
  16. XYREM [Suspect]
     Indication: SLEEP APNOEA SYNDROME
     Dosage: SEE IMAGE
     Route: 048
     Dates: start: 20110323
  17. PROBIOTIC SUPPLEMENT [Concomitant]
  18. ALBUTEROL [Concomitant]
  19. DOXYCYCLINE [Concomitant]
  20. DULOXETINE HYDROCHLORIDE [Concomitant]
  21. GABAPENTIN [Suspect]
     Indication: ARTHRALGIA
     Dosage: SEE IMAGE
     Route: 048
     Dates: start: 20110101, end: 20110401
  22. GABAPENTIN [Suspect]
     Indication: OSTEOARTHRITIS
     Dosage: SEE IMAGE
     Route: 048
     Dates: start: 20110101, end: 20110401
  23. GABAPENTIN [Suspect]
     Indication: ARTHRALGIA
     Dosage: SEE IMAGE
     Route: 048
     Dates: start: 20110101, end: 20110101
  24. GABAPENTIN [Suspect]
     Indication: OSTEOARTHRITIS
     Dosage: SEE IMAGE
     Route: 048
     Dates: start: 20110101, end: 20110101
  25. GABAPENTIN [Suspect]
     Indication: ARTHRALGIA
     Dosage: SEE IMAGE
     Route: 048
     Dates: start: 20110101, end: 20110101
  26. GABAPENTIN [Suspect]
     Indication: OSTEOARTHRITIS
     Dosage: SEE IMAGE
     Route: 048
     Dates: start: 20110101, end: 20110101
  27. POLYETHYLENE GLYCOL [Concomitant]
  28. CLINDAMYCIN [Concomitant]
  29. PROBIOTIC [Concomitant]
  30. ACETIC ACID [Concomitant]
  31. FLUTICASONE PROPIONATE [Concomitant]
  32. LANSOPRAZOLE [Concomitant]
  33. TOPIRAMATE [Concomitant]
  34. LORATADINE [Concomitant]
  35. BENZOYL PEROXIDE [Concomitant]

REACTIONS (17)
  - SOMNOLENCE [None]
  - SCAR [None]
  - SPINAL OSTEOARTHRITIS [None]
  - VITAMIN D DECREASED [None]
  - NIGHTMARE [None]
  - CONDITION AGGRAVATED [None]
  - MIGRAINE WITH AURA [None]
  - MUSCLE SPASMS [None]
  - ROAD TRAFFIC ACCIDENT [None]
  - INSOMNIA [None]
  - DIVERTICULITIS [None]
  - INTESTINAL OBSTRUCTION [None]
  - ABDOMINAL PAIN UPPER [None]
  - POLYP [None]
  - OSTEOARTHRITIS [None]
  - GASTRIC DISORDER [None]
  - IMPAIRED DRIVING ABILITY [None]
